FAERS Safety Report 23577491 (Version 1)
Quarter: 2024Q1

REPORT INFORMATION
  Report Type: Spontaneous
  Country: NL (occurrence: None)
  Receive Date: 20240228
  Receipt Date: 20240228
  Transmission Date: 20240410
  Serious: Yes (Other)
  Sender: FDA-Public Use
  Company Number: 2024A042731

PATIENT
  Age: 78 Year
  Sex: Male
  Weight: 100 kg

DRUGS (9)
  1. DAPAGLIFLOZIN [Suspect]
     Active Substance: DAPAGLIFLOZIN
     Indication: Renal disorder
     Dosage: 1 TABLET ONCE A DAY
     Dates: start: 20230808, end: 20230905
  2. METFORMIN HYDROCHLORIDE [Concomitant]
     Active Substance: METFORMIN HYDROCHLORIDE
  3. APIXABAN [Concomitant]
     Active Substance: APIXABAN
     Dosage: TABLET, 5 MG (MILLIGRAM)
  4. MONO-CEDOCARD RETARD [Concomitant]
     Dosage: MODIFIED-RELEASE CAPSULE, 25 MG (MILLIGRAM)
  5. FUROSEMIDE [Concomitant]
     Active Substance: FUROSEMIDE
     Dosage: TABLET 40MG
  6. PERINDOPRIL ERBUMINE [Concomitant]
     Active Substance: PERINDOPRIL ERBUMINE
     Dosage: TABLET, 2 MG (MILLIGRAM)
  7. PANTOPRAZOLE [Concomitant]
     Active Substance: PANTOPRAZOLE
     Dosage: TABLET 40.G
  8. GLICLAZIDE [Concomitant]
     Active Substance: GLICLAZIDE
     Dosage: MODIFIED-RELEASE TABLET, 80 MG (MILLIGRAM)
  9. ERTUGLIFLOZIN/SITAGLIPTIN [Concomitant]
     Dosage: ONE 12.5 MG TABLET

REACTIONS (2)
  - Phimosis [Recovering/Resolving]
  - Balanoposthitis [Recovering/Resolving]
